FAERS Safety Report 5908390-5 (Version None)
Quarter: 2008Q3

REPORT INFORMATION
  Report Type: 
  Country: None (occurrence: None)
  Receive Date: 20080930
  Receipt Date: 20080916
  Transmission Date: 20090109
  Serious: Yes (Hospitalization)
  Sender: FDA-Public Use
  Company Number: WAES 0803USA03145

PATIENT
  Age: 71 Year
  Sex: Female
  Weight: 68.9467 kg

DRUGS (25)
  1. CAP VORINOSTAT UNK [Suspect]
     Indication: ACUTE MYELOID LEUKAEMIA
     Dosage: 400 MG/DAILY/PO
     Route: 048
     Dates: start: 20080313, end: 20080326
  2. CAP VORINOSTAT UNK [Suspect]
     Indication: ACUTE MYELOID LEUKAEMIA
     Dosage: 400 MG/DAILY/PO
     Route: 048
     Dates: start: 20080410, end: 20080423
  3. CAP VORINOSTAT UNK [Suspect]
     Indication: ACUTE MYELOID LEUKAEMIA
     Dosage: 400 MG/DAILY/PO
     Route: 048
     Dates: start: 20080510, end: 20080523
  4. DOXYCYCLINE [Suspect]
     Indication: ROSACEA
     Dosage: 50 MG/BID/PO
     Route: 048
     Dates: start: 20080307, end: 20080317
  5. GEMFIBROZIL [Suspect]
     Indication: HYPERLIPIDAEMIA
     Dosage: 600 MG/BID/PO
     Route: 048
     Dates: start: 20070301, end: 20080317
  6. INFUSION (FORM) DECITABINE UNK [Suspect]
     Indication: ACUTE MYELOID LEUKAEMIA
     Dosage: 35 MG/DAILY/IV
     Route: 042
     Dates: start: 20080308, end: 20080312
  7. INFUSION (FORM) DECITABINE UNK [Suspect]
     Indication: ACUTE MYELOID LEUKAEMIA
     Dosage: 35 MG/DAILY/IV
     Route: 042
     Dates: start: 20080405, end: 20080409
  8. INFUSION (FORM) DECITABINE UNK [Suspect]
     Indication: ACUTE MYELOID LEUKAEMIA
     Dosage: 35 MG/DAILY/IV
     Route: 042
     Dates: start: 20080505, end: 20080507
  9. BISOPROLOL FUMARATE AND HYDROCHLOROTHIAZIDE [Suspect]
     Indication: HYPERTENSION
     Dosage: 2.6 MG/DAILY/PO
     Route: 048
     Dates: start: 20080301, end: 20080317
  10. AVELOX [Suspect]
     Indication: ANTIBIOTIC PROPHYLAXIS
     Dosage: 400 MG/DAILY/PO
     Route: 048
     Dates: start: 20080314, end: 20080317
  11. LOTEMAX [Concomitant]
  12. ACETAMINOPHEN [Concomitant]
  13. ALLOPURINOL [Concomitant]
  14. CALCIUM (UNSPECIFIED) (+) VITAMI [Concomitant]
  15. DIPHENHYDRAMINE HYDROCHLORIDE [Concomitant]
  16. DOCUSATE SODIUM [Concomitant]
  17. HYDROXYUREA [Concomitant]
  18. LORAZEPAM [Concomitant]
  19. OMEGA-3 MARINE TRIGLYCERIDES [Concomitant]
  20. OMEPRAZOLE [Concomitant]
  21. ONDANSETRON HYDROCHLORIDE [Concomitant]
  22. OXYCODONE HCL [Concomitant]
  23. PAROXETINE HCL [Concomitant]
  24. POTASSIUM CHLORIDE [Concomitant]
  25. SENNOSIDES [Concomitant]

REACTIONS (17)
  - ASTHENIA [None]
  - BLOOD CREATININE INCREASED [None]
  - BUNDLE BRANCH BLOCK RIGHT [None]
  - CONSTIPATION [None]
  - DIARRHOEA [None]
  - DRUG DOSE OMISSION [None]
  - FATIGUE [None]
  - HEADACHE [None]
  - HYPERGLYCAEMIA [None]
  - HYPOAESTHESIA [None]
  - HYPOPHAGIA [None]
  - NAUSEA [None]
  - ORAL DISORDER [None]
  - SYNCOPE VASOVAGAL [None]
  - URINARY TRACT OBSTRUCTION [None]
  - VISION BLURRED [None]
  - VOMITING [None]
